FAERS Safety Report 18351004 (Version 2)
Quarter: 2021Q2

REPORT INFORMATION
  Report Type: Spontaneous
  Country: US (occurrence: US)
  Receive Date: 20201006
  Receipt Date: 20210602
  Transmission Date: 20210717
  Serious: Yes (Other)
  Sender: FDA-Public Use
  Company Number: US-MYLANLABS-2020M1084236

PATIENT
  Age: 41 Year
  Sex: Male
  Weight: 65 kg

DRUGS (11)
  1. CATALYN [Concomitant]
     Indication: HYPOVITAMINOSIS
     Dosage: ONE TABLET TWICE PER DAY
     Dates: start: 1998
  2. VITAMIN D3 [Concomitant]
     Active Substance: CHOLECALCIFEROL
     Indication: HYPOVITAMINOSIS
     Dosage: 5000 INTERNATIONAL UNIT, QD
     Dates: start: 2003
  3. LIVERPLEX                          /07275101/ [Concomitant]
     Indication: LIVER DISORDER
     Dosage: ONE CAPSULE TWICE PER DAY
     Dates: start: 2015, end: 2018
  4. AMLODIPINE BESYLATE AND VALSARTAN [Suspect]
     Active Substance: AMLODIPINE BESYLATE\VALSARTAN
     Dosage: 160 MILLIGRAM
     Dates: start: 20170711, end: 20180114
  5. AMLODIPINE BESYLATE AND VALSARTAN [Suspect]
     Active Substance: AMLODIPINE BESYLATE\VALSARTAN
     Indication: HYPERTENSION
     Dosage: 160 MILLIGRAM
     Dates: start: 20151019, end: 20151118
  6. AMLODIPINE BESYLATE AND VALSARTAN [Suspect]
     Active Substance: AMLODIPINE BESYLATE\VALSARTAN
     Dosage: 160 MILLIGRAM
     Dates: start: 20151221, end: 20160320
  7. AMLODIPINE BESYLATE AND VALSARTAN [Suspect]
     Active Substance: AMLODIPINE BESYLATE\VALSARTAN
     Dosage: 160 MILLIGRAM
     Dates: start: 20170424, end: 20170524
  8. CALCIUM [Concomitant]
     Active Substance: CALCIUM
     Indication: OSTEOPOROSIS
     Dosage: 100 MILLIGRAM, BID
     Dates: start: 2010
  9. AMLODIPINE BESYLATE AND VALSARTAN [Suspect]
     Active Substance: AMLODIPINE BESYLATE\VALSARTAN
     Dosage: 160 MILLIGRAM
     Dates: start: 20160601, end: 20160811
  10. AMLODIPINE BESYLATE AND VALSARTAN [Suspect]
     Active Substance: AMLODIPINE BESYLATE\VALSARTAN
     Dosage: 160 MILLIGRAM
     Dates: start: 20160922, end: 20170115
  11. AMLODIPINE BESYLATE AND VALSARTAN [Suspect]
     Active Substance: AMLODIPINE BESYLATE\VALSARTAN
     Dosage: 160 MILLIGRAM
     Dates: start: 20180316, end: 20180415

REACTIONS (2)
  - Acute promyelocytic leukaemia [Unknown]
  - Renal cell carcinoma [Unknown]

NARRATIVE: CASE EVENT DATE: 201707
